FAERS Safety Report 8612569-1 (Version None)
Quarter: 2012Q3

REPORT INFORMATION
  Report Type: 
  Country: None (occurrence: None)
  Receive Date: 20120822
  Receipt Date: 20111012
  Transmission Date: 20120928
  Serious: No
  Sender: FDA-Public Use
  Company Number: US-ASTRAZENECA-2011SE61780

PATIENT
  Age: 41 Year
  Sex: Male

DRUGS (5)
  1. PROTONIX [Concomitant]
  2. ACIPHEX [Concomitant]
  3. NEXIUM [Suspect]
     Route: 048
  4. SYMBICORT [Suspect]
     Route: 055
  5. REVATIO [Concomitant]

REACTIONS (3)
  - ASTHMA [None]
  - DIABETES MELLITUS [None]
  - GASTROOESOPHAGEAL REFLUX DISEASE [None]
